FAERS Safety Report 16281327 (Version 5)
Quarter: 2019Q3

REPORT INFORMATION
  Report Type: Report from Study
  Country: IE (occurrence: IE)
  Receive Date: 20190507
  Receipt Date: 20190715
  Transmission Date: 20191004
  Serious: Yes (Other)
  Sender: FDA-Public Use
  Company Number: IE-JNJFOC-20181109323

PATIENT
  Age: 43 Year
  Sex: Female
  Weight: 84 kg

DRUGS (13)
  1. NEOCLARITYN [Concomitant]
     Active Substance: DESLORATADINE
     Route: 048
  2. MONTELAIR [Concomitant]
     Active Substance: MONTELUKAST SODIUM
     Route: 048
  3. RELVAR [Concomitant]
     Active Substance: FLUTICASONE FUROATE\VILANTEROL TRIFENATATE
     Route: 050
  4. HYLO-FORTE [Concomitant]
     Active Substance: HYALURONATE SODIUM
     Route: 047
  5. STELARA [Suspect]
     Active Substance: USTEKINUMAB
     Route: 058
     Dates: start: 20171012
  6. NEXAZOLE [Concomitant]
     Route: 048
  7. STELARA [Suspect]
     Active Substance: USTEKINUMAB
     Indication: CROHN^S DISEASE
     Dosage: INTRAVENOUS INFUSION
     Route: 058
     Dates: start: 20170816
  8. VENLAFAXINE [Concomitant]
     Active Substance: VENLAFAXINE HYDROCHLORIDE
     Route: 048
  9. STELARA [Suspect]
     Active Substance: USTEKINUMAB
     Route: 058
     Dates: start: 201711
  10. IDEOS [Concomitant]
     Active Substance: CALCIUM CARBONATE\CHOLECALCIFEROL
     Dosage: 500/400 MG
     Route: 048
  11. CERAZETTE [Concomitant]
     Route: 048
  12. IMURAN [Concomitant]
     Active Substance: AZATHIOPRINE
     Route: 048
  13. SALMOL [Concomitant]
     Route: 065

REACTIONS (5)
  - Off label use [Unknown]
  - Drug ineffective [Unknown]
  - Crohn^s disease [Not Recovered/Not Resolved]
  - Inappropriate schedule of product administration [Unknown]
  - Lower respiratory tract infection [Unknown]

NARRATIVE: CASE EVENT DATE: 2018
